FAERS Safety Report 5231736-0 (Version None)
Quarter: 2007Q1

REPORT INFORMATION
  Report Type: 
  Country: None (occurrence: None)
  Receive Date: 20070206
  Receipt Date: 20070130
  Transmission Date: 20070707
  Serious: Yes (Other)
  Sender: FDA-Public Use
  Company Number: ES-PFIZER INC-2007007524

PATIENT
  Age: 73 Year
  Sex: Male

DRUGS (9)
  1. CARDYL [Suspect]
     Indication: LIPID METABOLISM DISORDER
     Route: 048
  2. SEGURIL [Concomitant]
     Route: 048
  3. LEVOTHROID [Concomitant]
     Route: 048
     Dates: start: 20040101
  4. NITRO-DUR [Concomitant]
     Route: 062
     Dates: start: 20051103
  5. TENSOPREL [Concomitant]
     Route: 048
     Dates: start: 20050523
  6. ASPIRIN [Concomitant]
     Route: 048
     Dates: start: 20031008
  7. GABAPENTIN [Concomitant]
     Route: 048
     Dates: start: 20051215
  8. OMEPRAZOLE [Concomitant]
  9. DOXAZOSIN MESYLATE [Concomitant]
     Route: 048
     Dates: start: 20061103

REACTIONS (3)
  - DYSPHONIA [None]
  - DYSPNOEA [None]
  - FACE OEDEMA [None]
